FAERS Safety Report 9663987 (Version 1)
Quarter: 2013Q4

REPORT INFORMATION
  Report Type: Spontaneous
  Country: US (occurrence: None)
  Receive Date: 20131030
  Receipt Date: 20131030
  Transmission Date: 20140711
  Serious: Yes (Hospitalization, Disabling)
  Sender: FDA-Public Use
  Company Number: None

PATIENT
  Age: 85 Year
  Sex: Female
  Weight: 49.44 kg

DRUGS (1)
  1. RECLAST [Suspect]
     Indication: OSTEOPOROSIS
     Dosage: INFUSION
     Dates: start: 20130809, end: 20130809

REACTIONS (7)
  - Grip strength decreased [None]
  - Joint swelling [None]
  - Asthenia [None]
  - Balance disorder [None]
  - Fall [None]
  - Humerus fracture [None]
  - Activities of daily living impaired [None]
